FAERS Safety Report 4534653-4 (Version None)
Quarter: 2004Q4

REPORT INFORMATION
  Report Type: 
  Country: None (occurrence: None)
  Receive Date: 20041214
  Receipt Date: 20041015
  Transmission Date: 20050328
  Serious: No
  Sender: FDA-Public Use
  Company Number: 2004240254US

PATIENT
  Age: 48 Year
  Sex: Female
  Weight: 60.3 kg

DRUGS (3)
  1. BEXTRA [Suspect]
     Dosage: 10 MG, QD ; 20 MG, QD, ORAL
     Route: 048
     Dates: start: 20040324
  2. BEXTRA [Suspect]
     Dosage: 10 MG, QD ; 20 MG, QD, ORAL
     Route: 048
     Dates: start: 20040814
  3. MULTIVITAMIN [Concomitant]

REACTIONS (3)
  - APHTHOUS STOMATITIS [None]
  - DRUG INEFFECTIVE [None]
  - MEDICATION ERROR [None]
